FAERS Safety Report 5662888-6 (Version None)
Quarter: 2008Q1

REPORT INFORMATION
  Report Type: 
  Country: None (occurrence: None)
  Receive Date: 20080311
  Receipt Date: 20080311
  Transmission Date: 20080703
  Serious: Yes (Other)
  Sender: FDA-Public Use
  Company Number: None

PATIENT
  Age: 15 Year
  Sex: Female
  Weight: 45.3597 kg

DRUGS (2)
  1. ROCEPHIN [Suspect]
     Indication: SEXUAL ABUSE
     Dosage: AS SANFORD GUIDE HAS LISTED ONE TIME INJECTION IM
     Route: 030
     Dates: start: 20040417, end: 20040417
  2. AMOXICILLIN [Suspect]
     Indication: PHARYNGITIS STREPTOCOCCAL
     Dosage: FOR STREP THROAT PO
     Route: 048
     Dates: start: 20040517, end: 20040518

REACTIONS (2)
  - DRUG HYPERSENSITIVITY [None]
  - PHARYNGITIS STREPTOCOCCAL [None]
